FAERS Safety Report 4660609-7 (Version None)
Quarter: 2005Q2

REPORT INFORMATION
  Report Type: 
  Country: None (occurrence: None)
  Receive Date: 20050512
  Receipt Date: 20050216
  Transmission Date: 20051028
  Serious: Yes (Life-Threatening)
  Sender: FDA-Public Use
  Company Number: 2005AP01206

PATIENT
  Age: 29181 Day
  Sex: Male

DRUGS (11)
  1. DIPRIVAN [Suspect]
     Indication: SEDATION
     Route: 041
     Dates: start: 20050212, end: 20050215
  2. MEROPEN [Concomitant]
     Indication: PNEUMONIA
     Route: 041
     Dates: start: 20050210, end: 20050212
  3. LASIX [Concomitant]
     Indication: CARDIAC FAILURE
     Dates: start: 20050210, end: 20050217
  4. SOLU-MEDROL [Concomitant]
     Indication: LUNG DISORDER
     Dates: start: 20050212, end: 20050214
  5. HERBESSER [Concomitant]
     Indication: HYPERTENSION
     Route: 048
     Dates: end: 20050212
  6. ZYLORIC [Concomitant]
     Indication: HYPERURICAEMIA
     Route: 048
     Dates: end: 20050212
  7. AMARYL [Concomitant]
     Indication: DIABETES MELLITUS
     Route: 048
     Dates: end: 20050212
  8. CIPROXAN [Concomitant]
     Indication: PNEUMONIA
     Route: 041
     Dates: start: 20050212, end: 20050217
  9. FIRSTCIN [Concomitant]
     Indication: PNEUMONIA
     Route: 041
     Dates: start: 20050212, end: 20050217
  10. VENOGLOBULIN-IH [Concomitant]
     Indication: PNEUMONIA
     Dates: start: 20050213, end: 20050215
  11. ELASPOL [Concomitant]
     Indication: LUNG DISORDER
     Dates: start: 20050213, end: 20050217

REACTIONS (12)
  - ALANINE AMINOTRANSFERASE INCREASED [None]
  - ASPARTATE AMINOTRANSFERASE INCREASED [None]
  - BLOOD CREATINE PHOSPHOKINASE INCREASED [None]
  - BLOOD CULTURE POSITIVE [None]
  - CARDIAC ARREST [None]
  - DEPRESSED LEVEL OF CONSCIOUSNESS [None]
  - DISSEMINATED INTRAVASCULAR COAGULATION [None]
  - HEPATIC FUNCTION ABNORMAL [None]
  - PLATELET COUNT DECREASED [None]
  - PRODUCTIVE COUGH [None]
  - RENAL IMPAIRMENT [None]
  - STAPHYLOCOCCAL INFECTION [None]
